FAERS Safety Report 4968773-7 (Version None)
Quarter: 2006Q2

REPORT INFORMATION
  Report Type: 
  Country: None (occurrence: None)
  Receive Date: 20060411
  Receipt Date: 20060307
  Transmission Date: 20061013
  Serious: Yes (Hospitalization)
  Sender: FDA-Public Use
  Company Number: FRWYE453307MAR06

PATIENT
  Sex: Male

DRUGS (7)
  1. ENBREL [Suspect]
     Indication: RHEUMATOID ARTHRITIS
     Dosage: UNKNOWN
     Route: 058
     Dates: start: 20031101, end: 20060201
  2. CORTANCYL [Concomitant]
  3. ARAVA [Concomitant]
  4. VOLTAREN [Concomitant]
  5. NEXIUM [Concomitant]
  6. CITALOPRAM HYDROBROMIDE [Concomitant]
  7. DETENSIEL [Concomitant]

REACTIONS (6)
  - CELLULITIS STREPTOCOCCAL [None]
  - ERYTHEMA [None]
  - LOCALISED OEDEMA [None]
  - MORGANELLA INFECTION [None]
  - PYREXIA [None]
  - STREPTOCOCCAL ABSCESS [None]
